FAERS Safety Report 5301048-5 (Version None)
Quarter: 2007Q2

REPORT INFORMATION
  Report Type: 
  Country: None (occurrence: None)
  Receive Date: 20070411
  Receipt Date: 20070404
  Transmission Date: 20071010
  Serious: Yes (Disabling)
  Sender: FDA-Public Use
  Company Number: OSCN-NO-0702S-0076

PATIENT
  Age: 24 Year
  Sex: Male
  Weight: 62 kg

DRUGS (9)
  1. OMNISCAN [Suspect]
     Indication: SPINAL CORD NEOPLASM
     Dosage: 10 ML, SINGLE DOSE, I.V.
     Route: 042
     Dates: start: 20061120, end: 20061120
  2. ALFACALCIDOL (ALFAROL) [Concomitant]
  3. PREDNISOLONE [Concomitant]
  4. LISINOPRIL (LONGES) [Concomitant]
  5. CLONAZEPAM [Concomitant]
  6. WASSER [Concomitant]
  7. AMLODIPINE BESYLATE [Concomitant]
  8. FERROUS SULFATE (FERO-GRADUMET) [Concomitant]
  9. FAMOTIDINE [Concomitant]

REACTIONS (2)
  - GAIT DISTURBANCE [None]
  - NEPHROGENIC FIBROSING DERMOPATHY [None]
